FAERS Safety Report 10265371 (Version 1)
Quarter: 2014Q2

REPORT INFORMATION
  Report Type: Spontaneous
  Country: US (occurrence: US)
  Receive Date: 20140627
  Receipt Date: 20140627
  Transmission Date: 20141212
  Serious: No
  Sender: FDA-Public Use
  Company Number: US-GLAXOSMITHKLINE-A1075151A

PATIENT
  Sex: Female

DRUGS (1)
  1. MEKINIST [Suspect]
     Indication: MALIGNANT MELANOMA
     Dosage: 2MG UNKNOWN
     Route: 065
     Dates: start: 20140402

REACTIONS (1)
  - Dermatitis acneiform [Recovered/Resolved]
